FAERS Safety Report 4528094-3 (Version None)
Quarter: 2004Q4

REPORT INFORMATION
  Report Type: 
  Country: None (occurrence: None)
  Receive Date: 20041129
  Receipt Date: 20041014
  Transmission Date: 20050328
  Serious: Yes (Life-Threatening)
  Sender: FDA-Public Use
  Company Number: USA040466258

PATIENT
  Age: 38 Year
  Sex: Female

DRUGS (3)
  1. ZYPREXA [Suspect]
     Indication: PSYCHOTIC DISORDER
     Dosage: 10 MG/1 DAY
     Dates: start: 20030901, end: 20040607
  2. NORTRIPTYLINE HCL [Concomitant]
  3. LEXAPRO [Concomitant]

REACTIONS (3)
  - GESTATIONAL DIABETES [None]
  - PRE-ECLAMPSIA [None]
  - WEIGHT INCREASED [None]
